FAERS Safety Report 10021510 (Version 1)
Quarter: 2014Q1

REPORT INFORMATION
  Report Type: Spontaneous
  Country: US (occurrence: US)
  Receive Date: 20140319
  Receipt Date: 20140319
  Transmission Date: 20141002
  Serious: Yes (Other)
  Sender: FDA-Public Use
  Company Number: US-FRI-1000064620

PATIENT
  Sex: Male

DRUGS (2)
  1. FETZIMA [Suspect]
     Dosage: 20 MG
     Route: 048
  2. FETZIMA [Suspect]
     Dosage: 40 MG
     Route: 048

REACTIONS (2)
  - Urinary retention [Recovered/Resolved]
  - Palpitations [Unknown]
